FAERS Safety Report 4686203-X (Version None)
Quarter: 2005Q2

REPORT INFORMATION
  Report Type: 
  Country: None (occurrence: None)
  Receive Date: 20050607
  Receipt Date: 20050523
  Transmission Date: 20051028
  Serious: Yes (Hospitalization, Other)
  Sender: FDA-Public Use
  Company Number: 2005078880

PATIENT
  Age: 61 Year
  Sex: Female
  Weight: 54.4316 kg

DRUGS (4)
  1. CELEBREX [Suspect]
     Indication: FIBROMYALGIA
     Dosage: 200 MG (200 MG, 1 IN 1 D), ORAL
     Route: 048
     Dates: end: 20041227
  2. CELEBREX [Suspect]
     Indication: OSTEOPOROSIS
     Dosage: 200 MG (200 MG, 1 IN 1 D), ORAL
     Route: 048
     Dates: end: 20041227
  3. ELAVIL (AMITRIPYTLINE HYDROCHLORIDE) [Concomitant]
  4. FOSAMAX (ALENDORNATE SODIUM) [Concomitant]

REACTIONS (5)
  - ATRIAL FIBRILLATION [None]
  - ATRIAL FLUTTER [None]
  - MYOCARDIAL INFARCTION [None]
  - PALPITATIONS [None]
  - SUPRAVENTRICULAR TACHYCARDIA [None]
